FAERS Safety Report 8487769-4 (Version None)
Quarter: 2012Q3

REPORT INFORMATION
  Report Type: 
  Country: None (occurrence: None)
  Receive Date: 20120705
  Receipt Date: 20120628
  Transmission Date: 20120928
  Serious: Yes (Hospitalization)
  Sender: FDA-Public Use
  Company Number: JP-PFIZER INC-2012133073

PATIENT
  Age: 78 Year
  Sex: Male
  Weight: 55.2 kg

DRUGS (15)
  1. MAGMITT [Concomitant]
     Route: 048
  2. MUCODYNE [Concomitant]
     Route: 048
  3. ACETAMINOPHEN [Concomitant]
     Route: 048
  4. URIEF [Concomitant]
     Dosage: UNK
     Route: 048
  5. LANSOPRAZOLE [Concomitant]
     Route: 048
  6. RIMATIL [Concomitant]
     Route: 048
  7. STAYBLA [Concomitant]
     Dosage: UNK
     Route: 048
  8. LIVOSTIN [Concomitant]
     Dosage: UNK
     Route: 048
  9. PREDNISOLONE SODIUM SUCCINATE INJ [Concomitant]
     Route: 048
  10. CELEBREX [Concomitant]
     Route: 048
  11. CLARITHROMYCIN [Concomitant]
     Route: 048
  12. VFEND [Suspect]
     Indication: SYSTEMIC MYCOSIS
     Dosage: 150 MG, 2X/DAY
     Route: 048
     Dates: start: 20120510, end: 20120522
  13. ADALAT [Concomitant]
     Route: 048
  14. MUCOSTA [Concomitant]
     Route: 048
  15. LOXONIN [Concomitant]
     Dosage: UNK
     Route: 048

REACTIONS (1)
  - DRUG-INDUCED LIVER INJURY [None]
